FAERS Safety Report 6010073-0 (Version None)
Quarter: 2008Q4

REPORT INFORMATION
  Report Type: 
  Country: None (occurrence: None)
  Receive Date: 20081216
  Receipt Date: 20081210
  Transmission Date: 20090506
  Serious: Yes (Death)
  Sender: FDA-Public Use
  Company Number: 230115K08BRA

PATIENT
  Sex: Female

DRUGS (4)
  1. REBIF [Suspect]
     Indication: DRUG USE FOR UNKNOWN INDICATION
     Dosage: 44 MCG, 3 IN 1 WEEKS, SUBCUTANEOUS
     Route: 058
     Dates: start: 20020527, end: 20081010
  2. RETEMIC(OXYBUTYNIN HYDROCHLORIDE) [Concomitant]
  3. CLONAZEPAM [Concomitant]
  4. DARK2(ALL OTHER THERAPEUTIC PRODUCTS) [Concomitant]

REACTIONS (3)
  - ILL-DEFINED DISORDER [None]
  - INFARCTION [None]
  - THIRST [None]
